FAERS Safety Report 4535399-9 (Version None)
Quarter: 2004Q4

REPORT INFORMATION
  Report Type: 
  Country: None (occurrence: None)
  Receive Date: 20041214
  Receipt Date: 20040804
  Transmission Date: 20050328
  Serious: No
  Sender: FDA-Public Use
  Company Number: USA040874619

PATIENT
  Age: 55 Year
  Sex: Male

DRUGS (4)
  1. CIALIS [Suspect]
     Indication: ERECTILE DYSFUNCTION
     Dosage: 20 MG
     Dates: start: 20040701
  2. KLONOPIN [Concomitant]
  3. GLUCOPHAGE [Concomitant]
  4. LOREAL [Concomitant]

REACTIONS (3)
  - PANIC ATTACK [None]
  - PENILE PAIN [None]
  - SKIN LACERATION [None]
